FAERS Safety Report 6032817-4 (Version None)
Quarter: 2009Q1

REPORT INFORMATION
  Report Type: 
  Country: None (occurrence: None)
  Receive Date: 20090107
  Receipt Date: 20090107
  Transmission Date: 20090719
  Serious: No
  Sender: FDA-Public Use
  Company Number: None

PATIENT

DRUGS (1)
  1. METOPROLOL TARTRATE [Suspect]

REACTIONS (6)
  - ANXIETY [None]
  - CONDITION AGGRAVATED [None]
  - HEADACHE [None]
  - HYPERTENSION [None]
  - PARAESTHESIA [None]
  - PRODUCT QUALITY ISSUE [None]
